FAERS Safety Report 15783916 (Version 2)
Quarter: 2019Q2

REPORT INFORMATION
  Report Type: Spontaneous
  Country: IL (occurrence: IL)
  Receive Date: 20190102
  Receipt Date: 20190628
  Transmission Date: 20190711
  Serious: Yes (Life-Threatening, Hospitalization)
  Sender: FDA-Public Use
  Company Number: IL-SUN PHARMACEUTICAL INDUSTRIES LTD-2018R1-195160

PATIENT
  Age: 78 Year
  Sex: Male

DRUGS (1)
  1. PREDNISONE. [Suspect]
     Active Substance: PREDNISONE
     Indication: DEAFNESS
     Dosage: HIGH-DOSE
     Route: 048

REACTIONS (10)
  - Streptococcal bacteraemia [Unknown]
  - Hypotension [Unknown]
  - Toxic shock syndrome streptococcal [Unknown]
  - Respiratory failure [Unknown]
  - Liver injury [Unknown]
  - Coagulopathy [Unknown]
  - Lactic acidosis [Unknown]
  - Multiple organ dysfunction syndrome [Unknown]
  - Strongyloidiasis [Recovering/Resolving]
  - Acute kidney injury [Unknown]
